FAERS Safety Report 6903332-8 (Version None)
Quarter: 2010Q3

REPORT INFORMATION
  Report Type: 
  Country: None (occurrence: None)
  Receive Date: 20100803
  Receipt Date: 20080912
  Transmission Date: 20110219
  Serious: No
  Sender: FDA-Public Use
  Company Number: US-PFIZER INC-2008077266

PATIENT
  Sex: Female
  Weight: 71.8 kg

DRUGS (5)
  1. LYRICA [Suspect]
     Indication: FIBROMYALGIA
     Dates: start: 20080910
  2. WELLBUTRIN [Concomitant]
  3. LEVOTHYROXINE [Concomitant]
  4. ESTRACE [Concomitant]
  5. CEPHALEXIN [Concomitant]

REACTIONS (5)
  - DRY MOUTH [None]
  - INSOMNIA [None]
  - ORAL PAIN [None]
  - SOMNOLENCE [None]
  - TONGUE DRY [None]
